FAERS Safety Report 24320617 (Version 1)
Quarter: 2024Q3

REPORT INFORMATION
  Report Type: Spontaneous
  Country: ES (occurrence: ES)
  Receive Date: 20240915
  Receipt Date: 20240915
  Transmission Date: 20241017
  Serious: Yes (Death, Other)
  Sender: DR REDDYS
  Company Number: ES-GERMAN-SPO/ESP/24/0013134

PATIENT
  Age: 66 Year
  Sex: Male

DRUGS (3)
  1. BORTEZOMIB [Suspect]
     Active Substance: BORTEZOMIB
     Indication: Primary amyloidosis
  2. CYCLOPHOSPHAMIDE [Suspect]
     Active Substance: CYCLOPHOSPHAMIDE
     Indication: Primary amyloidosis
  3. DEXAMETHASONE [Suspect]
     Active Substance: DEXAMETHASONE
     Indication: Primary amyloidosis

REACTIONS (3)
  - Condition aggravated [Fatal]
  - Drug ineffective for unapproved indication [Fatal]
  - Drug tolerance [Unknown]
